FAERS Safety Report 5235435-0 (Version None)
Quarter: 2007Q1

REPORT INFORMATION
  Report Type: 
  Country: None (occurrence: None)
  Receive Date: 20070208
  Receipt Date: 20070208
  Transmission Date: 20070707
  Serious: Yes (Hospitalization)
  Sender: FDA-Public Use
  Company Number: None

PATIENT
  Age: 53 Year
  Sex: Male

DRUGS (5)
  1. FLUDARABINE [Suspect]
     Dosage: 42 MG IV
     Route: 042
     Dates: start: 20061127, end: 20061129
  2. CYCLOPHOSPHAMIDE [Suspect]
     Dosage: 425MG IV
     Route: 042
     Dates: start: 20061129, end: 20061129
  3. COMPAZINE [Concomitant]
  4. BACTRIM [Concomitant]
  5. VALACYCLOVIR [Concomitant]

REACTIONS (2)
  - ANAEMIA [None]
  - THROMBOCYTOPENIA [None]
